FAERS Safety Report 12539973 (Version 1)
Quarter: 2016Q3

REPORT INFORMATION
  Report Type: Spontaneous
  Country: US (occurrence: None)
  Receive Date: 20160707
  Receipt Date: 20160707
  Transmission Date: 20161109
  Serious: No
  Sender: FDA-Public Use
  Company Number: None

PATIENT
  Age: 70 Year
  Sex: Female
  Weight: 47.63 kg

DRUGS (12)
  1. PROLIA [Suspect]
     Active Substance: DENOSUMAB
     Indication: OSTEOPOROSIS
     Dosage: 6 MONTH INJECTION
     Dates: start: 20150811
  2. SYNTHROID [Concomitant]
     Active Substance: LEVOTHYROXINE SODIUM
  3. PLAVIX [Concomitant]
     Active Substance: CLOPIDOGREL BISULFATE
  4. ASPIRIN. [Concomitant]
     Active Substance: ASPIRIN
  5. OSTEO-BIFLEX [Concomitant]
  6. CALCIUM W/D [Concomitant]
  7. DEXILANT [Concomitant]
     Active Substance: DEXLANSOPRAZOLE
  8. AMLODIPINE [Concomitant]
     Active Substance: AMLODIPINE BESYLATE
  9. TYLENOL [Concomitant]
     Active Substance: ACETAMINOPHEN
  10. FLAXSEED [Concomitant]
     Active Substance: FLAX SEED
  11. LIPITOR [Concomitant]
     Active Substance: ATORVASTATIN CALCIUM
  12. IBESARTAN [Concomitant]

REACTIONS (17)
  - Immunosuppression [None]
  - Quality of life decreased [None]
  - Mouth ulceration [None]
  - Groin pain [None]
  - Peripheral swelling [None]
  - Joint swelling [None]
  - Muscle spasms [None]
  - Insomnia [None]
  - Abasia [None]
  - Sciatica [None]
  - Dermatitis [None]
  - Pain in extremity [None]
  - Tongue ulceration [None]
  - Arthralgia [None]
  - Gingival ulceration [None]
  - Psoriasis [None]
  - Alopecia [None]

NARRATIVE: CASE EVENT DATE: 20150811
